FAERS Safety Report 20488208 (Version 2)
Quarter: 2022Q2

REPORT INFORMATION
  Report Type: Spontaneous
  Country: US (occurrence: US)
  Receive Date: 20220218
  Receipt Date: 20220604
  Transmission Date: 20220721
  Serious: No
  Sender: FDA-Public Use
  Company Number: US-SANOFI-00966787

PATIENT
  Age: 41 Year
  Sex: Female

DRUGS (2)
  1. LANTUS SOLOSTAR [Suspect]
     Active Substance: INSULIN GLARGINE
     Indication: Type 2 diabetes mellitus
     Dosage: UNK UNK, BID (20 AM 25 PM TWICE DAILY )
  2. LANTUS SOLOSTAR [Suspect]
     Active Substance: INSULIN GLARGINE
     Dosage: 30 UNITS IN MORNING  AND 40 UNITS EVENING

REACTIONS (1)
  - Inappropriate schedule of product administration [Unknown]
